FAERS Safety Report 21301461 (Version 1)
Quarter: 2022Q3

REPORT INFORMATION
  Report Type: Spontaneous
  Country: ES (occurrence: ES)
  Receive Date: 20220907
  Receipt Date: 20220907
  Transmission Date: 20221027
  Serious: Yes (Other)
  Sender: FDA-Public Use
  Company Number: ES-STRIDES ARCOLAB LIMITED-2022SP011187

PATIENT
  Age: 65 Year
  Sex: Female

DRUGS (6)
  1. PREDNISOLONE [Suspect]
     Active Substance: PREDNISOLONE
     Indication: Petechiae
     Dosage: 25 MILLIGRAM PER WEEK
     Route: 065
  2. CLOBETASOL [Concomitant]
     Active Substance: CLOBETASOL
     Indication: Rash erythematous
     Dosage: UNK
     Route: 061
  3. UREA [Concomitant]
     Active Substance: UREA
     Indication: Rash erythematous
     Dosage: UNK
     Route: 061
  4. SALICYLIC ACID [Concomitant]
     Active Substance: SALICYLIC ACID
     Indication: Rash erythematous
     Dosage: UNK
     Route: 061
  5. AMMONIUM LACTATE [Concomitant]
     Active Substance: AMMONIUM LACTATE
     Indication: Rash erythematous
     Dosage: UNK
     Route: 061
  6. PROPYLENE GLYCOL [Concomitant]
     Active Substance: PROPYLENE GLYCOL
     Indication: Rash erythematous
     Dosage: UNK
     Route: 061

REACTIONS (1)
  - Erythrodermic psoriasis [Recovered/Resolved]
